FAERS Safety Report 13272257 (Version 1)
Quarter: 2017Q1

REPORT INFORMATION
  Report Type: Spontaneous
  Country: US (occurrence: US)
  Receive Date: 20170224
  Receipt Date: 20170224
  Transmission Date: 20170428
  Serious: Yes (Other)
  Sender: FDA-Public Use
  Company Number: None

PATIENT
  Age: 29 Year
  Sex: Female
  Weight: 67.92 kg

DRUGS (1)
  1. SUBOXONE [Suspect]
     Active Substance: BUPRENORPHINE HYDROCHLORIDE\NALOXONE HYDROCHLORIDE
     Indication: DRUG DEPENDENCE
     Dosage: DOSE AMOUNT - 8/2 MG?FREQUENCY - 2 ORAL QD?ROUTE - SUBLINGUALLY
     Route: 060
     Dates: start: 20170209, end: 20170215

REACTIONS (4)
  - Weight decreased [None]
  - Vomiting [None]
  - Headache [None]
  - Suppressed lactation [None]

NARRATIVE: CASE EVENT DATE: 20170209
